FAERS Safety Report 8878924 (Version 8)
Quarter: 2014Q3

REPORT INFORMATION
  Report Type: Spontaneous
  Country: US (occurrence: US)
  Receive Date: 20121026
  Receipt Date: 20140821
  Transmission Date: 20150326
  Serious: Yes (Hospitalization, Disabling, Other)
  Sender: FDA-Public Use
  Company Number: US-009507513-1210USA010272

PATIENT
  Sex: Female
  Weight: 57.14 kg

DRUGS (6)
  1. FOSAMAX [Suspect]
     Active Substance: ALENDRONATE SODIUM
     Indication: OSTEOPOROSIS
     Dosage: 10 MG, QD
     Route: 048
     Dates: start: 19960227, end: 20010322
  2. VITAMINS (UNSPECIFIED) [Concomitant]
     Active Substance: VITAMINS
     Dosage: 1 DF, QD
     Dates: start: 1993, end: 2011
  3. KLOR-CON [Concomitant]
     Active Substance: POTASSIUM CHLORIDE
     Indication: BLOOD POTASSIUM DECREASED
     Dosage: UNK
     Dates: start: 1983
  4. LASIX [Concomitant]
     Active Substance: FUROSEMIDE
     Indication: FLUID RETENTION
     Dosage: 80 MG, QAM
     Route: 048
     Dates: start: 1983
  5. FOSAMAX [Suspect]
     Active Substance: ALENDRONATE SODIUM
     Dosage: 70 MG, QW
     Route: 048
     Dates: start: 20010322
  6. LISINOPRIL. [Concomitant]
     Active Substance: LISINOPRIL
     Indication: BLOOD PRESSURE
     Dosage: 10 MG, QD
     Route: 048
     Dates: start: 1993, end: 2011

REACTIONS (37)
  - Spinal laminectomy [Recovered/Resolved]
  - Iron deficiency anaemia [Unknown]
  - Osteoarthritis [Unknown]
  - Oedema [Unknown]
  - Foot fracture [Recovered/Resolved]
  - Blood cholesterol increased [Unknown]
  - Gout [Unknown]
  - Normochromic normocytic anaemia [Unknown]
  - Hyperkalaemia [Unknown]
  - Osteoporosis [Not Recovered/Not Resolved]
  - Productive cough [Unknown]
  - Spinal column stenosis [Unknown]
  - Gastrooesophageal reflux disease [Unknown]
  - Large intestine polyp [Unknown]
  - Intramedullary rod insertion [Unknown]
  - Low turnover osteopathy [Not Recovered/Not Resolved]
  - Osteopenia [Unknown]
  - Metatarsus primus varus [Unknown]
  - Bunion operation [Unknown]
  - Defect conduction intraventricular [Unknown]
  - Lumbar radiculopathy [Recovered/Resolved]
  - Cataract [Unknown]
  - Gastrooesophageal reflux disease [Unknown]
  - Femur fracture [Not Recovered/Not Resolved]
  - Cellulitis [Unknown]
  - Renal failure [Unknown]
  - Foot deformity [Unknown]
  - Tonsillectomy [Unknown]
  - Cough [Not Recovered/Not Resolved]
  - Obsessive-compulsive disorder [Unknown]
  - Constipation [Not Recovered/Not Resolved]
  - Femur fracture [Not Recovered/Not Resolved]
  - Stress fracture [Not Recovered/Not Resolved]
  - Varicose vein [Unknown]
  - Cataract operation [Unknown]
  - Skin hypertrophy [Unknown]
  - Drug ineffective [Unknown]

NARRATIVE: CASE EVENT DATE: 20011204
